FAERS Safety Report 5375409-2 (Version None)
Quarter: 2007Q2

REPORT INFORMATION
  Report Type: 
  Country: None (occurrence: None)
  Receive Date: 20070629
  Receipt Date: 20070619
  Transmission Date: 20071010
  Serious: Yes (Other)
  Sender: FDA-Public Use
  Company Number: US-PFIZER INC-2007030871

PATIENT
  Sex: Female
  Weight: 64.09 kg

DRUGS (9)
  1. CHANTIX [Suspect]
     Indication: SMOKING CESSATION THERAPY
     Dates: start: 20070408
  2. LIPITOR [Suspect]
  3. NORVASC [Suspect]
  4. ATENOLOL [Concomitant]
  5. ISOSORBIDE MONONITRATE [Concomitant]
  6. ACETYLSALICYLIC ACID SRT [Concomitant]
  7. ZETIA [Concomitant]
  8. CALTRATE [Concomitant]
  9. ZANTAC [Concomitant]

REACTIONS (5)
  - ABDOMINAL PAIN UPPER [None]
  - DYSPEPSIA [None]
  - KNEE OPERATION [None]
  - NAUSEA [None]
  - SHOULDER OPERATION [None]
